FAERS Safety Report 13813263 (Version 4)
Quarter: 2017Q3

REPORT INFORMATION
  Report Type: Spontaneous
  Country: JP (occurrence: JP)
  Receive Date: 20170729
  Receipt Date: 20170919
  Transmission Date: 20171127
  Serious: Yes (Death, Hospitalization, Other)
  Sender: FDA-Public Use
  Company Number: JP-AMGEN-JPNSP2017110586

PATIENT
  Age: 74 Year
  Sex: Female
  Weight: 40.5 kg

DRUGS (7)
  1. VOLTAREN [Concomitant]
     Active Substance: DICLOFENAC SODIUM
     Indication: RHEUMATOID ARTHRITIS
     Dosage: 37.5 MG, 2X/DAY
     Route: 048
  2. CYTOTEC [Concomitant]
     Active Substance: MISOPROSTOL
     Indication: PROPHYLAXIS AGAINST GASTROINTESTINAL ULCER
     Dosage: 200 UG, 2X/DAY
     Route: 048
  3. METOLATE [Suspect]
     Active Substance: METHOTREXATE
     Dosage: 8 MG, WEEKLY
     Route: 048
     Dates: start: 20170406, end: 20170427
  4. ENBREL [Suspect]
     Active Substance: ETANERCEPT
     Indication: RHEUMATOID ARTHRITIS
     Dosage: 50 MG, WEEKLY
     Route: 058
     Dates: start: 20170510
  5. METOLATE [Suspect]
     Active Substance: METHOTREXATE
     Dosage: 10 MG, WEEKLY
     Route: 048
     Dates: start: 20170428
  6. METOLATE [Suspect]
     Active Substance: METHOTREXATE
     Indication: RHEUMATOID ARTHRITIS
     Dosage: 6 MG, WEEKLY
     Route: 048
  7. PAXIL [Concomitant]
     Active Substance: PAROXETINE HYDROCHLORIDE
     Dosage: 0.5 DF, DAILY
     Route: 048

REACTIONS (4)
  - Pneumonia aspiration [Fatal]
  - Depression [Fatal]
  - Condition aggravated [Fatal]
  - Respiratory failure [Fatal]

NARRATIVE: CASE EVENT DATE: 20170726
